FAERS Safety Report 15221664 (Version 1)
Quarter: 2018Q3

REPORT INFORMATION
  Report Type: Spontaneous
  Country: US (occurrence: US)
  Receive Date: 20180731
  Receipt Date: 20180731
  Transmission Date: 20181010
  Serious: No
  Sender: FDA-Public Use
  Company Number: US-BAYER-2018-137973

PATIENT
  Age: 62 Year
  Sex: Female
  Weight: 76.96 kg

DRUGS (2)
  1. MIRALAX [Suspect]
     Active Substance: POLYETHYLENE GLYCOL 3350
     Indication: COLONOSCOPY
     Dosage: UNK
     Route: 048
     Dates: start: 2017, end: 2017
  2. DULCOLAX (BISACODYL) [Concomitant]
     Active Substance: BISACODYL

REACTIONS (4)
  - Off label use [Unknown]
  - Vomiting [Recovered/Resolved]
  - Product use issue [Unknown]
  - Product use in unapproved indication [Unknown]

NARRATIVE: CASE EVENT DATE: 2017
